FAERS Safety Report 16661063 (Version 1)
Quarter: 2019Q3

REPORT INFORMATION
  Report Type: Spontaneous
  Country: US (occurrence: US)
  Receive Date: 20190802
  Receipt Date: 20190802
  Transmission Date: 20191004
  Serious: Yes (Other)
  Sender: FDA-Public Use
  Company Number: US-TORRENT-00009032

PATIENT
  Sex: Female

DRUGS (1)
  1. LOSARTAN. [Suspect]
     Active Substance: LOSARTAN
     Indication: PRODUCT USED FOR UNKNOWN INDICATION
     Dosage: SINCE 5 TO 10 YEAR
     Dates: end: 201904

REACTIONS (2)
  - Gastric cancer [Recovered/Resolved]
  - Gastrectomy [Unknown]

NARRATIVE: CASE EVENT DATE: 2016
